FAERS Safety Report 17402402 (Version 1)
Quarter: 2020Q1

REPORT INFORMATION
  Report Type: Spontaneous
  Country: US (occurrence: US)
  Receive Date: 20200211
  Receipt Date: 20200211
  Transmission Date: 20200409
  Serious: No
  Sender: FDA-Public Use
  Company Number: US-SA-2020SA033931

PATIENT
  Age: 1 Year
  Sex: Male

DRUGS (1)
  1. LUMIZYME [Suspect]
     Active Substance: ALGLUCOSIDASE ALFA
     Route: 065

REACTIONS (2)
  - Blood immunoglobulin G [Unknown]
  - Antibody test positive [Unknown]

NARRATIVE: CASE EVENT DATE: 20200125
